FAERS Safety Report 7219502-8 (Version None)
Quarter: 2011Q1

REPORT INFORMATION
  Report Type: 
  Country: None (occurrence: None)
  Receive Date: 20110111
  Receipt Date: 20110104
  Transmission Date: 20110831
  Serious: Yes (Other)
  Sender: FDA-Public Use
  Company Number: US-SANOFI-AVENTIS-2011SA000748

PATIENT
  Age: 85 Year
  Sex: Male

DRUGS (2)
  1. AMIODARONE [Concomitant]
     Route: 065
     Dates: end: 20101015
  2. MULTAQ [Suspect]
     Indication: ATRIAL FIBRILLATION
     Route: 048
     Dates: start: 20101001, end: 20101201

REACTIONS (5)
  - SWELLING [None]
  - LYMPHOCYTIC LEUKAEMIA [None]
  - INFLUENZA [None]
  - RASH ERYTHEMATOUS [None]
  - PAIN [None]
